FAERS Safety Report 24674463 (Version 2)
Quarter: 2025Q1

REPORT INFORMATION
  Report Type: Spontaneous
  Country: US (occurrence: US)
  Receive Date: 20241128
  Receipt Date: 20250311
  Transmission Date: 20250409
  Serious: No
  Sender: NOVARTIS
  Company Number: US-002147023-NVSC2024US226311

PATIENT
  Sex: Male

DRUGS (1)
  1. COSENTYX [Suspect]
     Active Substance: SECUKINUMAB
     Indication: Psoriasis
     Dosage: 300MG/2ML (ONCE A MONTH)
     Route: 065
     Dates: start: 20241122

REACTIONS (8)
  - Device leakage [Unknown]
  - Needle issue [Unknown]
  - Product dose omission in error [Unknown]
  - Arthralgia [Unknown]
  - Rash [Unknown]
  - Pain [Unknown]
  - Gait disturbance [Unknown]
  - Psoriasis [Unknown]
